FAERS Safety Report 19996815 (Version 6)
Quarter: 2022Q4

REPORT INFORMATION
  Report Type: Report from Study
  Country: US (occurrence: US)
  Receive Date: 20211026
  Receipt Date: 20221027
  Transmission Date: 20230113
  Serious: Yes (Hospitalization, Other)
  Sender: FDA-Public Use
  Company Number: US-NOVARTISPH-NVSC2021US239388

PATIENT
  Age: 44 Year
  Sex: Female

DRUGS (1)
  1. KESIMPTA [Suspect]
     Active Substance: OFATUMUMAB
     Indication: Product used for unknown indication
     Dosage: 20 MG, QMO
     Route: 058
     Dates: start: 20210826

REACTIONS (11)
  - Multiple sclerosis relapse [Not Recovered/Not Resolved]
  - Gait inability [Unknown]
  - Fall [Unknown]
  - Speech disorder [Unknown]
  - Limb discomfort [Unknown]
  - Blindness [Unknown]
  - Paralysis [Unknown]
  - Groin pain [Unknown]
  - Muscular weakness [Unknown]
  - Neuralgia [Unknown]
  - Visual impairment [Unknown]

NARRATIVE: CASE EVENT DATE: 20220506
